FAERS Safety Report 11065849 (Version 2)
Quarter: 2015Q2

REPORT INFORMATION
  Report Type: Spontaneous
  Country: US (occurrence: US)
  Receive Date: 20150425
  Receipt Date: 20150525
  Transmission Date: 20150821
  Serious: Yes (Other)
  Sender: FDA-Public Use
  Company Number: US-JNJFOC-20150317564

PATIENT
  Sex: Female

DRUGS (1)
  1. LEVAQUIN [Suspect]
     Active Substance: LEVOFLOXACIN
     Indication: BRONCHITIS
     Route: 048
     Dates: start: 2015

REACTIONS (6)
  - Limb discomfort [Unknown]
  - Pain [Unknown]
  - Tendon pain [Unknown]
  - Arthralgia [Unknown]
  - Gait disturbance [Unknown]
  - Asthenia [Unknown]
